FAERS Safety Report 25410454 (Version 1)
Quarter: 2025Q2

REPORT INFORMATION
  Report Type: Report from Study
  Country: US (occurrence: US)
  Receive Date: 20250608
  Receipt Date: 20250608
  Transmission Date: 20250717
  Serious: Yes (Other)
  Sender: ABBVIE
  Company Number: US-ABBVIE-6311495

PATIENT
  Sex: Male

DRUGS (1)
  1. HUMIRA [Suspect]
     Active Substance: ADALIMUMAB
     Indication: Crohn^s disease
     Route: 058
     Dates: start: 20200730

REACTIONS (7)
  - Loss of consciousness [Unknown]
  - Jaw fracture [Unknown]
  - Surgery [Unknown]
  - Autonomic nervous system imbalance [Unknown]
  - Fall [Unknown]
  - Malabsorption [Unknown]
  - Infusion related reaction [Unknown]
